FAERS Safety Report 23302209 (Version 1)
Quarter: 2023Q4

REPORT INFORMATION
  Report Type: Spontaneous
  Country: CN (occurrence: CN)
  Receive Date: 20231215
  Receipt Date: 20231215
  Transmission Date: 20240110
  Serious: Yes (Other)
  Sender: FDA-Public Use
  Company Number: CN-PFIZER INC-PV202300200651

PATIENT
  Age: 80 Year
  Sex: Female
  Weight: 55 kg

DRUGS (3)
  1. NIRMATRELVIR\RITONAVIR [Suspect]
     Active Substance: NIRMATRELVIR\RITONAVIR
     Indication: Coronavirus pneumonia
     Dosage: [NIRMATRELVIR 300 MG]/[RITONAVIR 100 MG], 2X/DAY
     Route: 048
     Dates: start: 20231125, end: 20231130
  2. BETAHISTINE HYDROCHLORIDE [Concomitant]
     Active Substance: BETAHISTINE HYDROCHLORIDE
     Indication: Vertebrobasilar insufficiency
     Dosage: 30 MG, 1X/DAY
     Route: 041
     Dates: start: 20231125, end: 20231208
  3. SHU XUE NING [GINKGO BILOBA EXTRACT] [Concomitant]
     Indication: Vertebrobasilar insufficiency
     Dosage: 20 ML, 1X/DAY
     Route: 041
     Dates: start: 20231125, end: 20231208

REACTIONS (1)
  - Blood creatinine increased [Recovering/Resolving]

NARRATIVE: CASE EVENT DATE: 20231205
